FAERS Safety Report 9163372 (Version 2)
Quarter: 2013Q4

REPORT INFORMATION
  Report Type: Spontaneous
  Country: GB (occurrence: GB)
  Receive Date: 20130314
  Receipt Date: 20131011
  Transmission Date: 20140711
  Serious: Yes (Disabling)
  Sender: FDA-Public Use
  Company Number: GB-WATSON-2013-03580

PATIENT
  Age: 39 Year
  Sex: Female
  Weight: 70 kg

DRUGS (3)
  1. CITALOPRAM HYDROBROMIDE (UNKNOWN) [Suspect]
     Indication: DEPRESSION
     Dosage: 20 MG, UNK
     Route: 048
     Dates: start: 20130131
  2. CITALOPRAM HYDROBROMIDE (UNKNOWN) [Interacting]
     Dosage: 10 MG, UNK
     Route: 048
     Dates: end: 20130210
  3. IBUPROFEN (UNKNOWN) [Interacting]
     Indication: PRODUCT USED FOR UNKNOWN INDICATION
     Dosage: UNK
     Route: 065

REACTIONS (3)
  - Vaginal haemorrhage [Recovered/Resolved with Sequelae]
  - Drug interaction [Unknown]
  - Anaemia [Unknown]
